FAERS Safety Report 22634503 (Version 1)
Quarter: 2023Q2

REPORT INFORMATION
  Report Type: Spontaneous
  Country: US (occurrence: None)
  Receive Date: 20230622
  Receipt Date: 20230622
  Transmission Date: 20230722
  Serious: Yes (Hospitalization, Other)
  Sender: FDA-Public Use
  Company Number: None

PATIENT
  Age: 76 Year
  Sex: Male
  Weight: 82.8 kg

DRUGS (9)
  1. ARIPIPRAZOLE [Suspect]
     Active Substance: ARIPIPRAZOLE
     Indication: Depression
     Dates: start: 20230607, end: 20230610
  2. ARIPIPRAZOLE [Suspect]
     Active Substance: ARIPIPRAZOLE
     Indication: Anxiety
  3. CITALOPRAM [Concomitant]
     Active Substance: CITALOPRAM HYDROBROMIDE
  4. COLACE [Concomitant]
     Active Substance: DOCUSATE SODIUM
  5. PEPCID [Concomitant]
     Active Substance: FAMOTIDINE
  6. METOPROLOL TARTRATE [Concomitant]
     Active Substance: METOPROLOL TARTRATE
  7. PRAVASTATIN [Concomitant]
     Active Substance: PRAVASTATIN
  8. VALSARTAN [Concomitant]
     Active Substance: VALSARTAN
  9. VITAMIN D3 [Concomitant]
     Active Substance: CHOLECALCIFEROL

REACTIONS (5)
  - Hallucination [None]
  - Delusion [None]
  - Tremor [None]
  - Balance disorder [None]
  - Therapy cessation [None]

NARRATIVE: CASE EVENT DATE: 20230609
